FAERS Safety Report 25411727 (Version 1)
Quarter: 2025Q2

REPORT INFORMATION
  Report Type: Spontaneous
  Country: US (occurrence: US)
  Receive Date: 20250609
  Receipt Date: 20250609
  Transmission Date: 20250716
  Serious: Yes (Death, Life-Threatening, Hospitalization, Other)
  Sender: AMNEAL
  Company Number: US-AMNEAL PHARMACEUTICALS-2025-AMRX-02110

PATIENT
  Age: 82 Year
  Sex: Male
  Weight: 76 kg

DRUGS (8)
  1. AZATHIOPRINE [Suspect]
     Active Substance: AZATHIOPRINE
     Indication: Pyoderma gangrenosum
     Dosage: 50 MILLIGRAM, QD
     Route: 048
     Dates: end: 20241201
  2. TALAZOPARIB [Suspect]
     Active Substance: TALAZOPARIB
     Indication: Prostate cancer
     Dosage: UNK, 1X/DAY
     Route: 048
     Dates: start: 20210810, end: 20241201
  3. ENZALUTAMIDE [Suspect]
     Active Substance: ENZALUTAMIDE
     Indication: Prostate cancer metastatic
     Dosage: 160 MILLIGRAM, 1X/DAY
     Route: 048
     Dates: start: 20210812, end: 20241201
  4. PANTOPRAZOLE [Concomitant]
     Active Substance: PANTOPRAZOLE
     Indication: Product used for unknown indication
     Route: 065
     Dates: start: 20240108
  5. DRONEDARONE [Concomitant]
     Active Substance: DRONEDARONE
     Indication: Product used for unknown indication
     Route: 048
     Dates: start: 20241008
  6. AMLODIPINE [Concomitant]
     Active Substance: AMLODIPINE BESYLATE
     Indication: Product used for unknown indication
     Route: 048
     Dates: start: 20231108
  7. ATORVASTATIN [Concomitant]
     Active Substance: ATORVASTATIN
     Indication: Product used for unknown indication
     Route: 065
  8. METOPROLOL [Concomitant]
     Active Substance: METOPROLOL
     Indication: Product used for unknown indication
     Route: 065

REACTIONS (6)
  - Myelodysplastic syndrome [Fatal]
  - Second primary malignancy [Fatal]
  - Multiple organ dysfunction syndrome [Fatal]
  - Septic shock [Fatal]
  - Pleural effusion [Unknown]
  - Dyspnoea [Unknown]

NARRATIVE: CASE EVENT DATE: 20241202
